FAERS Safety Report 26019937 (Version 1)
Quarter: 2025Q4

REPORT INFORMATION
  Report Type: Spontaneous
  Country: US (occurrence: US)
  Receive Date: 20251110
  Receipt Date: 20251110
  Transmission Date: 20260117
  Serious: No
  Sender: GALPHARM INTERNATIONAL
  Company Number: US-PERRIGO-25US001986

PATIENT
  Age: 6 Year
  Sex: Male
  Weight: 22.222 kg

DRUGS (3)
  1. POLYETHYLENE GLYCOL 3350 [Suspect]
     Active Substance: POLYETHYLENE GLYCOL 3350
     Indication: Faeces soft
     Dosage: THREE TEASPOONS, QD
     Route: 048
     Dates: start: 202308
  2. POLYETHYLENE GLYCOL 3350 [Suspect]
     Active Substance: POLYETHYLENE GLYCOL 3350
     Dosage: THREE TEASPOONS, SINGLE
     Route: 048
     Dates: start: 20250209, end: 20250209
  3. POLYETHYLENE GLYCOL 3350 [Suspect]
     Active Substance: POLYETHYLENE GLYCOL 3350
     Dosage: UNKNOWN, SINGLE
     Route: 048
     Dates: start: 20250210, end: 20250210

REACTIONS (6)
  - Abdominal discomfort [Recovered/Resolved]
  - Nausea [Recovered/Resolved]
  - Panic attack [Recovered/Resolved]
  - Product use complaint [Recovered/Resolved]
  - Product administered to patient of inappropriate age [Unknown]
  - Incorrect product administration duration [Unknown]

NARRATIVE: CASE EVENT DATE: 20230801
